FAERS Safety Report 6980440-7 (Version None)
Quarter: 2010Q3

REPORT INFORMATION
  Report Type: 
  Country: None (occurrence: None)
  Receive Date: 20100909
  Receipt Date: 20100824
  Transmission Date: 20110219
  Serious: Yes (Death)
  Sender: FDA-Public Use
  Company Number: 2009002031

PATIENT
  Age: 72 Year
  Sex: Female

DRUGS (3)
  1. ERLOTINIB HYDROCHLORIDE [Suspect]
     Indication: PANCREATIC CARCINOMA
     Dosage: (MG, QD), ORAL
     Route: 048
     Dates: start: 20090525, end: 20090619
  2. PANTOPRAZOLE SODIUM [Concomitant]
  3. DOMPERIDONE (DOMPERIDONE) [Concomitant]

REACTIONS (5)
  - DEHYDRATION [None]
  - DIARRHOEA [None]
  - METABOLIC ACIDOSIS [None]
  - MUCOSAL INFLAMMATION [None]
  - SEPSIS [None]
